FAERS Safety Report 8375545-2 (Version None)
Quarter: 2012Q1

REPORT INFORMATION
  Report Type: 
  Country: None (occurrence: None)
  Receive Date: 20120323
  Receipt Date: 20110218
  Transmission Date: 20120608
  Serious: Yes (Hospitalization)
  Sender: FDA-Public Use
  Company Number: 163-21880-11021073

PATIENT
  Age: 59 Year
  Sex: Female

DRUGS (3)
  1. REVLIMID [Suspect]
     Indication: MULTIPLE MYELOMA
     Dosage: 5 MG, 1 IN 1 D, PO 10 MG, 1 IN 1 D, PO 25 MG, 1 IN 1 D, PO
     Route: 048
     Dates: start: 20100801
  2. REVLIMID [Suspect]
     Indication: MULTIPLE MYELOMA
     Dosage: 5 MG, 1 IN 1 D, PO 10 MG, 1 IN 1 D, PO 25 MG, 1 IN 1 D, PO
     Route: 048
     Dates: start: 20101101
  3. REVLIMID [Suspect]
     Indication: MULTIPLE MYELOMA
     Dosage: 5 MG, 1 IN 1 D, PO 10 MG, 1 IN 1 D, PO 25 MG, 1 IN 1 D, PO
     Route: 048
     Dates: start: 20110201

REACTIONS (5)
  - DRUG INEFFECTIVE [None]
  - PAIN IN EXTREMITY [None]
  - NEOPLASM [None]
  - TREATMENT NONCOMPLIANCE [None]
  - HYPOAESTHESIA [None]
